FAERS Safety Report 19383971 (Version 2)
Quarter: 2021Q3

REPORT INFORMATION
  Report Type: Spontaneous
  Country: JP (occurrence: JP)
  Receive Date: 20210607
  Receipt Date: 20210701
  Transmission Date: 20211014
  Serious: Yes (Other)
  Sender: FDA-Public Use
  Company Number: JP-PFIZER INC-2021022722

PATIENT
  Age: 81 Year
  Sex: Female

DRUGS (4)
  1. SOLANAX [Suspect]
     Active Substance: ALPRAZOLAM
     Indication: ANXIETY
     Dosage: UNK, THRICE DAILY
  2. SOLANAX [Suspect]
     Active Substance: ALPRAZOLAM
     Dosage: UNK, (TOOK ONLY ONE OR TWICE, NOT THRICE DAILY)
  3. SOLANAX [Suspect]
     Active Substance: ALPRAZOLAM
     Indication: INSOMNIA
     Dosage: 2 DF, ONCE A DAY
     Route: 048
  4. SOLANAX [Suspect]
     Active Substance: ALPRAZOLAM
     Indication: PANIC DISORDER
     Dosage: 1 DF, ONCE A DAY
     Route: 048

REACTIONS (18)
  - Hypertension [Unknown]
  - Angina pectoris [Unknown]
  - Nausea [Recovered/Resolved]
  - Dysstasia [Not Recovered/Not Resolved]
  - Muscular weakness [Unknown]
  - Intentional product misuse [Unknown]
  - Dizziness [Not Recovered/Not Resolved]
  - Fatigue [Unknown]
  - Asthenia [Unknown]
  - Therapeutic product effect decreased [Unknown]
  - Aortic aneurysm [Unknown]
  - Malaise [Unknown]
  - Therapeutic response unexpected [Unknown]
  - Gait disturbance [Unknown]
  - Loss of personal independence in daily activities [Unknown]
  - Drug dependence [Not Recovered/Not Resolved]
  - Blood cholesterol increased [Recovering/Resolving]
  - Somnolence [Unknown]

NARRATIVE: CASE EVENT DATE: 202104
